FAERS Safety Report 5506074-9 (Version None)
Quarter: 2007Q4

REPORT INFORMATION
  Report Type: 
  Country: None (occurrence: None)
  Receive Date: 20071105
  Receipt Date: 20071030
  Transmission Date: 20080405
  Serious: Yes (Life-Threatening, Hospitalization)
  Sender: FDA-Public Use
  Company Number: PHBS2007CN17916

PATIENT
  Age: 55 Year
  Sex: Male

DRUGS (4)
  1. ACARBOSE [Concomitant]
  2. PIOGLITAZONE [Concomitant]
  3. ASPIRIN [Concomitant]
  4. LESCOL [Suspect]
     Indication: HYPERCHOLESTEROLAEMIA
     Dosage: 40 MG, QD
     Route: 048
     Dates: start: 20071017, end: 20071023

REACTIONS (15)
  - ABASIA [None]
  - BLOOD CREATINE PHOSPHOKINASE INCREASED [None]
  - CARDIAC ARREST [None]
  - DYSCHEZIA [None]
  - FATIGUE [None]
  - HYPOAESTHESIA [None]
  - INSOMNIA [None]
  - ISCHAEMIA [None]
  - MECHANICAL VENTILATION [None]
  - MUSCULAR WEAKNESS [None]
  - MYALGIA [None]
  - PAIN IN EXTREMITY [None]
  - RESPIRATORY ARREST [None]
  - TENSION [None]
  - URINARY RETENTION [None]
